FAERS Safety Report 5901471-1 (Version None)
Quarter: 2008Q3

REPORT INFORMATION
  Report Type: 
  Country: None (occurrence: None)
  Receive Date: 20080929
  Receipt Date: 20080806
  Transmission Date: 20090109
  Serious: No
  Sender: FDA-Public Use
  Company Number: US-BAYER-200830553NA

PATIENT
  Sex: Female

DRUGS (1)
  1. MIRENA [Suspect]
     Indication: DRUG USE FOR UNKNOWN INDICATION
     Route: 015

REACTIONS (5)
  - BREAST TENDERNESS [None]
  - DISTURBANCE IN ATTENTION [None]
  - GASTROENTERITIS VIRAL [None]
  - NAUSEA [None]
  - THIRST [None]
